FAERS Safety Report 21940861 (Version 5)
Quarter: 2025Q1

REPORT INFORMATION
  Report Type: Report from Study
  Country: US (occurrence: US)
  Receive Date: 20230202
  Receipt Date: 20250206
  Transmission Date: 20250409
  Serious: Yes (Hospitalization, Other)
  Sender: ABBVIE
  Company Number: US-ABBVIE-4290899

PATIENT
  Age: 64 Year
  Sex: Male

DRUGS (2)
  1. SKYRIZI [Suspect]
     Active Substance: RISANKIZUMAB-RZAA
     Indication: Psoriasis
     Route: 058
     Dates: start: 20211108
  2. SKYRIZI [Suspect]
     Active Substance: RISANKIZUMAB-RZAA
     Indication: Pustular psoriasis
     Route: 058
     Dates: start: 20220329, end: 202211

REACTIONS (9)
  - Knee arthroplasty [Recovering/Resolving]
  - Psoriasis [Not Recovered/Not Resolved]
  - Knee operation [Unknown]
  - Staphylococcal infection [Not Recovered/Not Resolved]
  - Concussion [Unknown]
  - Road traffic accident [Unknown]
  - Arthropathy [Unknown]
  - Incision site discharge [Unknown]
  - Memory impairment [Unknown]

NARRATIVE: CASE EVENT DATE: 20220101
